FAERS Safety Report 9172199 (Version 7)
Quarter: 2018Q4

REPORT INFORMATION
  Report Type: Spontaneous
  Country: JP (occurrence: JP)
  Receive Date: 20130319
  Receipt Date: 20181127
  Transmission Date: 20190205
  Serious: Yes (Hospitalization, Other)
  Sender: FDA-Public Use
  Company Number: JP-LUNDBECK-DKLU1089716

PATIENT
  Age: 1 Month
  Sex: Male

DRUGS (1)
  1. CLOBAZAM. [Suspect]
     Active Substance: CLOBAZAM
     Indication: EPILEPSY
     Route: 064
     Dates: end: 20130311

REACTIONS (9)
  - Exposure via breast milk [Recovered/Resolved]
  - Decreased activity [Recovering/Resolving]
  - Liver disorder [Recovering/Resolving]
  - Alanine aminotransferase increased [Recovering/Resolving]
  - Gamma-glutamyltransferase increased [Recovering/Resolving]
  - Lethargy [Recovering/Resolving]
  - Foetal exposure during pregnancy [Recovering/Resolving]
  - Aspartate aminotransferase increased [Recovering/Resolving]
  - Weight gain poor [Recovering/Resolving]

NARRATIVE: CASE EVENT DATE: 201303
